FAERS Safety Report 24066784 (Version 2)
Quarter: 2024Q4

REPORT INFORMATION
  Report Type: Spontaneous
  Country: CA (occurrence: CA)
  Receive Date: 20240709
  Receipt Date: 20241001
  Transmission Date: 20250115
  Serious: Yes (Disabling, Other)
  Sender: PFIZER
  Company Number: CA-SEATTLE GENETICS-2019SGN02895

PATIENT
  Age: 15 Year
  Sex: Female
  Weight: 48 kg

DRUGS (13)
  1. ADCETRIS [Suspect]
     Active Substance: BRENTUXIMAB VEDOTIN
     Indication: Hodgkin^s disease
     Dosage: 60 MG/M2
     Route: 042
  2. VINCRISTINE SULFATE [Suspect]
     Active Substance: VINCRISTINE SULFATE
     Indication: Hodgkin^s disease
     Dosage: 1.4 MG/M2
     Route: 042
  3. BLEOMYCIN SULFATE [Concomitant]
     Active Substance: BLEOMYCIN SULFATE
     Dosage: UNK
     Route: 042
  4. BUSULFAN [Concomitant]
     Active Substance: BUSULFAN
     Dosage: UNK
  5. CYCLOPHOSPHAMIDE [Concomitant]
     Active Substance: CYCLOPHOSPHAMIDE
     Dosage: UNK
  6. DEXAMETHASONE [Concomitant]
     Active Substance: DEXAMETHASONE
     Dosage: UNK
  7. DOXORUBICIN [Concomitant]
     Active Substance: DOXORUBICIN
     Dosage: UNK
     Route: 042
  8. ETOPOSIDE [Concomitant]
     Active Substance: ETOPOSIDE
     Dosage: UNK
  9. GEMCITABINE [Concomitant]
     Active Substance: GEMCITABINE
     Dosage: UNK
  10. MELPHALAN [Concomitant]
     Active Substance: MELPHALAN
     Dosage: UNK
  11. METHYLPREDNISOLONE [Concomitant]
     Active Substance: METHYLPREDNISOLONE
     Dosage: UNK
  12. PREDNISONE [Concomitant]
     Active Substance: PREDNISONE
     Dosage: UNK
  13. VINORELBINE TARTRATE [Concomitant]
     Active Substance: VINORELBINE TARTRATE
     Dosage: UNK
     Route: 042

REACTIONS (10)
  - Asthenia [Recovered/Resolved]
  - Dysgraphia [Recovered/Resolved]
  - Hypoaesthesia [Recovered/Resolved]
  - Mobility decreased [Recovered/Resolved]
  - Motor dysfunction [Recovered/Resolved]
  - Neuropathy peripheral [Recovered/Resolved]
  - Neurotoxicity [Recovered/Resolved]
  - Paraesthesia [Recovered/Resolved]
  - Tremor [Recovered/Resolved]
  - Off label use [Unknown]
